FAERS Safety Report 17317214 (Version 2)
Quarter: 2021Q2

REPORT INFORMATION
  Report Type: Spontaneous
  Country: JP (occurrence: JP)
  Receive Date: 20200124
  Receipt Date: 20210421
  Transmission Date: 20210716
  Serious: Yes (Other)
  Sender: FDA-Public Use
  Company Number: JP-SHIRE-JP202002516AA

PATIENT
  Age: 56 Year
  Sex: Male

DRUGS (1)
  1. HUMAN NORMAL IMMUNOGLOBULIN [Suspect]
     Active Substance: HUMAN IMMUNOGLOBULIN G
     Indication: STATUS EPILEPTICUS
     Dosage: HIGH DOSE
     Route: 065

REACTIONS (6)
  - Multiple organ dysfunction syndrome [Recovering/Resolving]
  - Device related infection [Recovered/Resolved]
  - Rhabdomyolysis [Recovering/Resolving]
  - Septic shock [Recovered/Resolved]
  - Acute kidney injury [Recovering/Resolving]
  - Intentional product use issue [Unknown]
